FAERS Safety Report 10051679 (Version 2)
Quarter: 2014Q2

REPORT INFORMATION
  Report Type: Spontaneous
  Country: GB (occurrence: GB)
  Receive Date: 20140401
  Receipt Date: 20140409
  Transmission Date: 20141212
  Serious: Yes (Other)
  Sender: FDA-Public Use
  Company Number: GB-009507513-1403GBR013383

PATIENT
  Age: 78 Year
  Sex: Male
  Weight: 59 kg

DRUGS (16)
  1. FOSAMAX [Suspect]
     Indication: OSTEOPOROSIS PROPHYLAXIS
     Dosage: 70 MG, UNK
     Route: 048
     Dates: start: 20140219, end: 20140226
  2. SERETIDE [Concomitant]
     Dosage: 1 DF, BID, DRY POWDER FOR INHALATION
     Route: 055
  3. ADCAL-D3 [Concomitant]
     Dosage: 1 DF, BID, STOPPED. WILL RE-ATKE. REPEAT
  4. ORAMORPH [Concomitant]
     Indication: DYSPNOEA
     Dosage: 2.5 ML, 10MG/5ML
     Route: 048
  5. ACETAMINOPHEN (+) CODEINE PHOSPHATE [Concomitant]
     Dosage: 8/500. TAKE ONE OR TWO TABLETS UP TO FOUR TIMES DAILY AS REQUIRED.
  6. ALBUTEROL [Concomitant]
     Dosage: 2 DF, 100MCG/PUFF. 2 PUFFS UP TO FOUR TIMES DAILY
     Route: 055
  7. ALBUTEROL [Concomitant]
     Dosage: 1 DF, QID, 2.5MG/2.5MLS UNIT DOSE.
  8. DOCUSATE SODIUM [Concomitant]
     Dosage: 100 MG, BID. REPEAT
  9. THEOPHYLLINE [Concomitant]
     Dosage: 250 MG, BID. REPEAT
  10. RANITIDINE [Concomitant]
     Dosage: 150 MG, UNK. REPEAT
  11. PREDNISOLONE [Concomitant]
     Dosage: 30 MG, QD. REPEAT. ENTERIC COATED
  12. PREDNISOLONE [Concomitant]
     Dosage: 5 MG, QD. REPEAT.
  13. TIOTROPIUM BROMIDE [Concomitant]
     Dosage: 18 MICROGRAM, QD. DRY POWDER CAPSULE FOR INHALATION
     Route: 055
  14. SIMVASTATIN [Concomitant]
     Dosage: 20 MG, QD. ONE AT NIGHT. REPEAT.
     Route: 048
  15. DOXYCYCLINE HYCLATE [Concomitant]
     Dosage: 100 MG, 2 CAPSULES ON THE FIRST DAY THEN ONE DAILY. REPEAT.
  16. IPRATROPIUM BROMIDE [Concomitant]
     Dosage: 1 DF, TID, 250MCG/ML

REACTIONS (2)
  - Dyspnoea [Recovered/Resolved]
  - Rash [Recovered/Resolved]
